FAERS Safety Report 25305646 (Version 1)
Quarter: 2025Q2

REPORT INFORMATION
  Report Type: Spontaneous
  Country: US (occurrence: US)
  Receive Date: 20250513
  Receipt Date: 20250513
  Transmission Date: 20250716
  Serious: Yes (Other)
  Sender: ALKERMES
  Company Number: US-ALKERMES INC.-ALK-2025-001224

PATIENT
  Age: 38 Year
  Sex: Female

DRUGS (3)
  1. VIVITROL [Suspect]
     Active Substance: NALTREXONE
     Indication: Alcohol use disorder
     Route: 030
     Dates: start: 20250314
  2. METHAMPHETAMINE [Suspect]
     Active Substance: METHAMPHETAMINE
     Indication: Product used for unknown indication
     Route: 065
  3. REMERON [Concomitant]
     Active Substance: MIRTAZAPINE
     Indication: Mental disorder
     Route: 065

REACTIONS (2)
  - Overdose [Unknown]
  - Substance abuse [Unknown]

NARRATIVE: CASE EVENT DATE: 20250101
